FAERS Safety Report 7767383-6 (Version None)
Quarter: 2011Q3

REPORT INFORMATION
  Report Type: 
  Country: None (occurrence: None)
  Receive Date: 20110922
  Receipt Date: 20110418
  Transmission Date: 20111222
  Serious: Yes (Other)
  Sender: FDA-Public Use
  Company Number: US-ASTRAZENECA-2007UW04483

PATIENT
  Age: 557 Month
  Sex: Female
  Weight: 95.3 kg

DRUGS (15)
  1. LEXAPRO [Concomitant]
     Dosage: 10 MG TWO A HALF TABLET
     Dates: start: 20040209
  2. FLUOXETINE [Concomitant]
     Dosage: 20 MG TAKE ONE CAPSULE EAC
     Dates: start: 20040507
  3. HYDROCODONE BITARTRATE AND ACETAMINOPHEN [Concomitant]
     Dosage: 5/500 DAILY
     Dates: start: 20031226
  4. SEROQUEL [Suspect]
     Indication: DEPRESSION
     Route: 048
     Dates: start: 20031001, end: 20060401
  5. PAXIL CR [Concomitant]
     Dosage: 25 MG DAILY
     Dates: start: 20031027
  6. ALPRAZOLAM [Concomitant]
     Dosage: 1 MG DAILY
     Dates: start: 20011116
  7. CARISOPRODOL [Concomitant]
     Dosage: 350 MG 1 ONE TAB EVER
     Dates: start: 20031226
  8. PREDNISONE [Concomitant]
     Dates: start: 20040228
  9. ADDERALL 5 [Concomitant]
  10. DIAZEPAM [Concomitant]
     Dosage: 5 MG TAKE ONE TABLET BY M
     Dates: start: 20040430
  11. DEPAKOTE [Concomitant]
  12. SEROQUEL [Suspect]
     Indication: BIPOLAR DISORDER
     Route: 048
     Dates: start: 20031001, end: 20060401
  13. SEROQUEL [Suspect]
     Dosage: 50 MG-200 MG DAILY
     Route: 048
     Dates: start: 20031027, end: 20060407
  14. SEROQUEL [Suspect]
     Dosage: 50 MG-200 MG DAILY
     Route: 048
     Dates: start: 20031027, end: 20060407
  15. IBUPROFEN [Concomitant]
     Dosage: 800 MG TAKE ONE TABLET TH
     Dates: start: 20040228

REACTIONS (4)
  - KETOACIDOSIS [None]
  - TYPE 2 DIABETES MELLITUS [None]
  - DIABETES MELLITUS [None]
  - PANCREATITIS [None]
